FAERS Safety Report 16364777 (Version 2)
Quarter: 2019Q2

REPORT INFORMATION
  Report Type: Spontaneous
  Country: AU (occurrence: AU)
  Receive Date: 20190529
  Receipt Date: 20190626
  Transmission Date: 20190711
  Serious: Yes (Other)
  Sender: FDA-Public Use
  Company Number: AU-AMGEN-AUSSP2019021537

PATIENT
  Sex: Male

DRUGS (2)
  1. AIMOVIG [Suspect]
     Active Substance: ERENUMAB-AOOE
     Indication: MIGRAINE
     Dosage: 140 MILLIGRAM UNK
     Route: 058
  2. R CHOP [Suspect]
     Active Substance: CYCLOPHOSPHAMIDE\DOXORUBICIN\PREDNISONE\RITUXIMAB\VINCRISTINE
     Indication: CHEMOTHERAPY
     Dosage: UNK,CHEMO COCKTAIL
     Route: 065
     Dates: start: 2015

REACTIONS (14)
  - Neuropathy peripheral [Unknown]
  - Scrotal swelling [Unknown]
  - Headache [Recovered/Resolved]
  - Muscle strain [Unknown]
  - Migraine [Unknown]
  - Condition aggravated [Unknown]
  - Dysuria [Unknown]
  - Insomnia [Unknown]
  - Nausea [Unknown]
  - Drug ineffective [Unknown]
  - Abdominal discomfort [Unknown]
  - Anal incontinence [Unknown]
  - Peripheral swelling [Unknown]
  - Constipation [Unknown]
